FAERS Safety Report 17212926 (Version 1)
Quarter: 2019Q4

REPORT INFORMATION
  Report Type: Spontaneous
  Country: GB (occurrence: GB)
  Receive Date: 20191230
  Receipt Date: 20191230
  Transmission Date: 20200122
  Serious: Yes (Hospitalization)
  Sender: FDA-Public Use
  Company Number: GB-TEVA-2019-GB-1159494

PATIENT
  Age: 70 Year
  Sex: Female

DRUGS (21)
  1. TRAMADOL. [Concomitant]
     Active Substance: TRAMADOL
     Dosage: ONE OR TWO TO BE TAKEN FOUR TIMES DAILY AS REQUIRED
  2. CIPROFLOXACIN. [Concomitant]
     Active Substance: CIPROFLOXACIN
     Dosage: 500 MILLIGRAM
  3. PROCHLORPERAZINE. [Concomitant]
     Active Substance: PROCHLORPERAZINE
     Dosage: 9 MILLIGRAM
  4. PARACETAMOL [Concomitant]
     Active Substance: ACETAMINOPHEN
     Dosage: ONE OR TWO TO BE TAKEN FOUR TIMES DAILY AS REQUIRED
  5. BIOXTRA GEL SPRAY [Concomitant]
     Dosage: 1 DOSAGE FORMS, APPLICATION SALIVIA REPLACEMENT
  6. CEFALEXIN [Concomitant]
     Active Substance: CEPHALEXIN
     Dosage: 1000 MILLIGRAM
  7. AMLODIPINE [Concomitant]
     Active Substance: AMLODIPINE BESYLATE
     Dosage: 10 MILLIGRAM
  8. CASSIA [Concomitant]
     Dosage: 15 MILLIGRAM DAILY; 15 MILLIGRAM, AT NIGHT
  9. LEFLUNOMIDE. [Suspect]
     Active Substance: LEFLUNOMIDE
     Dosage: 20 MILLIGRAM
  10. VENTOLIN [Concomitant]
     Active Substance: ALBUTEROL SULFATE
     Dosage: 2 DOSAGE FORMS
     Route: 055
  11. OMEPRAZOLE. [Concomitant]
     Active Substance: OMEPRAZOLE
     Dosage: 10 MILLIGRAM DAILY; 10 MILLIGRAM, IN THE MORNING
  12. FOLIC ACID. [Concomitant]
     Active Substance: FOLIC ACID
     Dosage: 5 MILLIGRAM
  13. CEFALEXIN [Concomitant]
     Active Substance: CEPHALEXIN
     Dosage: 5 ML DAILY; 5 ML, AT NIGHT
  14. SIMVASTATIN. [Concomitant]
     Active Substance: SIMVASTATIN
     Dosage: 20 MILLIGRAM, AT NIGHT
  15. PIVMECILLINAM [Concomitant]
     Active Substance: AMDINOCILLIN PIVOXIL
     Dosage: 600 MILLIGRAM, INITIALLY 2 TABLETS FOR 1 DOSE, THEN 1 TABLET THREE TIMES DAILY FOR 7 DAYS IN TOTAL
  16. DOXAZOSIN [Concomitant]
     Active Substance: DOXAZOSIN MESYLATE
     Dosage: 4 MILLIGRAM DAILY; 4 MILLIGRAM, AT NIGHT
  17. NYSTAN [Concomitant]
     Active Substance: NYSTATIN
     Dosage: 4 ML, 100,000UNITS/ML
  18. TRELEGY ELLIPTA [Concomitant]
     Active Substance: FLUTICASONE FUROATE\UMECLIDINIUM BROMIDE\VILANTEROL TRIFENATATE
     Dosage: 1 DOSAGE FORMS, PUFF
     Route: 055
  19. LEVOTHYROXINE SODIUM. [Concomitant]
     Active Substance: LEVOTHYROXINE SODIUM
     Dosage: 100 MICROGRAM
  20. CLOTRIMAZOLE. [Concomitant]
     Active Substance: CLOTRIMAZOLE
     Dosage: 3 DOSAGE FORMS
  21. FLUTICASONE. [Concomitant]
     Active Substance: FLUTICASONE

REACTIONS (1)
  - Urosepsis [Unknown]
